FAERS Safety Report 5615593-6 (Version None)
Quarter: 2008Q1

REPORT INFORMATION
  Report Type: 
  Country: None (occurrence: None)
  Receive Date: 20080201
  Receipt Date: 20080122
  Transmission Date: 20080703
  Serious: Yes (Life-Threatening)
  Sender: FDA-Public Use
  Company Number: GXKR2008GB01054

PATIENT
  Age: 72 Year
  Sex: Female

DRUGS (10)
  1. DOXAZOSIN MESYLATE [Suspect]
     Indication: HYPERTENSION
     Dosage: ORAL
     Route: 048
     Dates: start: 20080108, end: 20080108
  2. AMLODIPINE [Concomitant]
  3. ACETYLSALICYLIC ACID SRT [Concomitant]
  4. ATENOLOL [Concomitant]
  5. FUROSEMIDE [Concomitant]
  6. GAVISCON [Concomitant]
  7. LISINOPRIL [Concomitant]
  8. OMEPRAZOLE [Concomitant]
  9. ACETAMINOPHEN [Concomitant]
  10. SIMVASTATIN [Concomitant]

REACTIONS (3)
  - ANAPHYLACTIC REACTION [None]
  - LOCAL SWELLING [None]
  - SWOLLEN TONGUE [None]
